FAERS Safety Report 15704073 (Version 1)
Quarter: 2018Q4

REPORT INFORMATION
  Report Type: Spontaneous
  Country: US (occurrence: US)
  Receive Date: 20181210
  Receipt Date: 20181210
  Transmission Date: 20190205
  Serious: Yes (Other)
  Sender: FDA-Public Use
  Company Number: US-PFIZER INC-2018501580

PATIENT
  Age: 64 Year
  Sex: Male

DRUGS (2)
  1. GABAPENTIN. [Suspect]
     Active Substance: GABAPENTIN
     Indication: NEUROPATHY PERIPHERAL
     Dosage: UNK UNK, 1X/DAY ( IN SEPTEMBER)
  2. GABAPENTIN. [Suspect]
     Active Substance: GABAPENTIN
     Indication: PAIN
     Dosage: UNK UNK, 1X/DAY (IN OCTOBER)

REACTIONS (6)
  - Embolism [Recovered/Resolved]
  - Heart rate irregular [Recovered/Resolved]
  - Intentional product misuse [Unknown]
  - Cardiac disorder [Recovered/Resolved]
  - Arrhythmia [Recovered/Resolved]
  - Pulmonary embolism [Unknown]
